FAERS Safety Report 9272428 (Version 1)
Quarter: 2013Q2

REPORT INFORMATION
  Report Type: Spontaneous
  Country: US (occurrence: US)
  Receive Date: 20130506
  Receipt Date: 20130506
  Transmission Date: 20140414
  Serious: No
  Sender: FDA-Public Use
  Company Number: US-ASTRAZENECA-2012SE86546

PATIENT
  Age: 24601 Day
  Sex: Male

DRUGS (3)
  1. PRILOSEC OTC [Suspect]
     Route: 048
     Dates: start: 20121012, end: 20121014
  2. METOPROLOL [Concomitant]
     Dosage: UNKNOWN
  3. LIPITOR [Concomitant]
     Dosage: UNKNOWN

REACTIONS (4)
  - Urticaria [Recovered/Resolved]
  - Incorrect dose administered [Unknown]
  - Inappropriate schedule of drug administration [Unknown]
  - Incorrect drug administration duration [Unknown]
